FAERS Safety Report 9526093 (Version 1)
Quarter: 2013Q3

REPORT INFORMATION
  Report Type: Spontaneous
  Country: CA (occurrence: CA)
  Receive Date: 20130916
  Receipt Date: 20130916
  Transmission Date: 20140515
  Serious: Yes (Other)
  Sender: FDA-Public Use
  Company Number: CA-GE HEALTHCARE MEDICAL DIAGNOSTICS-VISP-PR-1309S-0810

PATIENT
  Age: 82 Year
  Sex: Male

DRUGS (2)
  1. VISIPAQUE [Suspect]
     Indication: RECURRENT CANCER
     Route: 042
     Dates: start: 20130909, end: 20130909
  2. VISIPAQUE [Suspect]
     Indication: DIAGNOSTIC PROCEDURE

REACTIONS (2)
  - Throat irritation [Recovered/Resolved]
  - Eye pruritus [Recovered/Resolved]
